FAERS Safety Report 19175756 (Version 2)
Quarter: 2021Q2

REPORT INFORMATION
  Report Type: Report from Study
  Country: CO (occurrence: CO)
  Receive Date: 20210423
  Receipt Date: 20210430
  Transmission Date: 20210717
  Serious: Yes (Death, Life-Threatening, Hospitalization)
  Sender: FDA-Public Use
  Company Number: PHHY2018CO114351

PATIENT
  Age: 79 Year
  Sex: Male
  Weight: 83 kg

DRUGS (7)
  1. LOSARTAN POTASSIUM. [Suspect]
     Active Substance: LOSARTAN POTASSIUM
     Indication: HYPERTENSION
     Route: 065
  2. JAKAVI [Suspect]
     Active Substance: RUXOLITINIB
     Dosage: MORE THAN 10 YEARS AGO, 10 MG
     Route: 048
  3. JAKAVI [Suspect]
     Active Substance: RUXOLITINIB
     Dosage: 5 MG, QD
     Route: 048
  4. JAKAVI [Suspect]
     Active Substance: RUXOLITINIB
     Indication: MYELOFIBROSIS
     Dosage: 15 MG, QD
     Route: 048
  5. JAKAVI [Suspect]
     Active Substance: RUXOLITINIB
     Dosage: 15 MG, QD
     Route: 048
     Dates: start: 20181001
  6. ATORVASTATIN [Concomitant]
     Active Substance: ATORVASTATIN
     Indication: PRODUCT USED FOR UNKNOWN INDICATION
     Dosage: UNK
     Route: 065
  7. AMLODIPINE [Concomitant]
     Active Substance: AMLODIPINE BESYLATE
     Indication: PRODUCT USED FOR UNKNOWN INDICATION
     Dosage: UNK
     Route: 065

REACTIONS (18)
  - Blood creatinine increased [Unknown]
  - Squamous cell carcinoma [Unknown]
  - Inappropriate schedule of product administration [Unknown]
  - Blood disorder [Unknown]
  - Skin cancer [Unknown]
  - Neoplasm [Unknown]
  - Haemorrhage [Unknown]
  - Myocardial infarction [Fatal]
  - Tension [Unknown]
  - Renal disorder [Unknown]
  - Insomnia [Recovered/Resolved]
  - Haemoglobin increased [Unknown]
  - Haemoglobin decreased [Unknown]
  - Pain in extremity [Recovered/Resolved]
  - Blood potassium increased [Unknown]
  - Hypotension [Unknown]
  - Haemoglobin decreased [Recovering/Resolving]
  - Ulcer haemorrhage [Recovered/Resolved]

NARRATIVE: CASE EVENT DATE: 202006
